FAERS Safety Report 12095449 (Version 2)
Quarter: 2019Q2

REPORT INFORMATION
  Report Type: Report from Study
  Country: US (occurrence: US)
  Receive Date: 20160219
  Receipt Date: 20190404
  Transmission Date: 20190711
  Serious: Yes (Other)
  Sender: FDA-Public Use
  Company Number: US-VERTEX PHARMACEUTICALS-2015-005542

PATIENT
  Age: 43 Year
  Sex: Female

DRUGS (1)
  1. ORKAMBI [Suspect]
     Active Substance: IVACAFTOR\LUMACAFTOR
     Indication: CYSTIC FIBROSIS
     Dosage: UNK
     Route: 048
     Dates: start: 20151109, end: 20160209

REACTIONS (16)
  - Infection [Unknown]
  - Nausea [Unknown]
  - Oxygen saturation decreased [Unknown]
  - Pyrexia [Unknown]
  - Hyperhidrosis [Not Recovered/Not Resolved]
  - Malaise [Not Recovered/Not Resolved]
  - Pain [Unknown]
  - Fatigue [Unknown]
  - Cough [Not Recovered/Not Resolved]
  - Mental disorder [Unknown]
  - Productive cough [Recovered/Resolved]
  - Seborrhoea [Not Recovered/Not Resolved]
  - Dyspnoea [Unknown]
  - Pancreatitis [Unknown]
  - Insomnia [Not Recovered/Not Resolved]
  - Pulmonary function test decreased [Not Recovered/Not Resolved]

NARRATIVE: CASE EVENT DATE: 201511
